FAERS Safety Report 19927743 (Version 1)
Quarter: 2021Q4

REPORT INFORMATION
  Report Type: Spontaneous
  Country: FR (occurrence: FR)
  Receive Date: 20211007
  Receipt Date: 20211007
  Transmission Date: 20220304
  Serious: Yes (Hospitalization, Other)
  Sender: FDA-Public Use
  Company Number: FR-AFSSAPS-CN20212878

PATIENT
  Age: 26 Year
  Sex: Female
  Weight: 84 kg

DRUGS (9)
  1. RISPERIDONE [Suspect]
     Active Substance: RISPERIDONE
     Indication: Agitation
     Dosage: 4 MILLIGRAM, DAILY
     Route: 048
     Dates: start: 20210813, end: 20210814
  2. RISPERIDONE [Suspect]
     Active Substance: RISPERIDONE
     Dosage: 6 MILLIGRAM, DAILY
     Route: 048
     Dates: start: 20210815, end: 20210816
  3. RISPERIDONE [Suspect]
     Active Substance: RISPERIDONE
     Dosage: 8 MILLIGRAM, DAILY
     Route: 048
     Dates: start: 20210817, end: 20210817
  4. RISPERIDONE [Suspect]
     Active Substance: RISPERIDONE
     Dosage: 6 MILLIGRAM, DAILY
     Route: 048
     Dates: start: 20210818, end: 20210819
  5. LOXAPINE [Suspect]
     Active Substance: LOXAPINE
     Indication: Agitation
     Dosage: 15 MILLIGRAM, BID
     Route: 048
     Dates: start: 20210819, end: 20210820
  6. LOXAPINE [Suspect]
     Active Substance: LOXAPINE
     Dosage: 15 GTT DROPS, AS NECESSARY
     Route: 048
     Dates: start: 20210805, end: 20210808
  7. LOXAPINE [Suspect]
     Active Substance: LOXAPINE
     Dosage: 15 MILLIGRAM, TID
     Route: 048
     Dates: start: 20210818, end: 20210818
  8. LOXAPINE [Suspect]
     Active Substance: LOXAPINE
     Dosage: 10 MILLIGRAM, AS NECESSARY
     Route: 048
     Dates: start: 20210809, end: 20210813
  9. LOXAPINE [Suspect]
     Active Substance: LOXAPINE
     Dosage: 15 MILLIGRAM, QID
     Route: 048
     Dates: start: 20210814, end: 20210817

REACTIONS (1)
  - Extrapyramidal disorder [Recovered/Resolved]

NARRATIVE: CASE EVENT DATE: 20210816
